FAERS Safety Report 21904298 (Version 1)
Quarter: 2023Q1

REPORT INFORMATION
  Report Type: Spontaneous
  Country: US (occurrence: US)
  Receive Date: 20230124
  Receipt Date: 20230124
  Transmission Date: 20230417
  Serious: No
  Sender: FDA-Public Use
  Company Number: US-TEVA-2023-US-2845690

PATIENT

DRUGS (2)
  1. BUPROPION [Suspect]
     Active Substance: BUPROPION
     Indication: Product used for unknown indication
     Dosage: 100 MG
  2. BUPROPION [Suspect]
     Active Substance: BUPROPION
     Dosage: STRENGTH: 200 MG

REACTIONS (3)
  - Affective disorder [Recovered/Resolved]
  - Night sweats [Recovered/Resolved]
  - Drug ineffective [Unknown]
